FAERS Safety Report 5454079-9 (Version None)
Quarter: 2007Q3

REPORT INFORMATION
  Report Type: 
  Country: None (occurrence: None)
  Receive Date: 20070917
  Receipt Date: 20070709
  Transmission Date: 20080115
  Serious: Yes (Other)
  Sender: FDA-Public Use
  Company Number: US-ASTRAZENECA-2006UW08900

PATIENT
  Age: 517 Month
  Sex: Female

DRUGS (3)
  1. SEROQUEL [Suspect]
     Indication: DEPRESSION
     Route: 048
     Dates: start: 20010101
  2. RISPERDAL [Suspect]
     Indication: DEPRESSION
     Dates: start: 20030301
  3. ZYPREXA [Concomitant]
     Dates: start: 20020101

REACTIONS (2)
  - DIABETES MELLITUS [None]
  - PANCREATITIS [None]
